FAERS Safety Report 6641634-3 (Version None)
Quarter: 2010Q1

REPORT INFORMATION
  Report Type: 
  Country: None (occurrence: None)
  Receive Date: 20100317
  Receipt Date: 20100317
  Transmission Date: 20100710
  Serious: Yes (Hospitalization)
  Sender: FDA-Public Use
  Company Number: None

PATIENT
  Sex: Male
  Weight: 77.4 kg

DRUGS (3)
  1. DECITABINE [Suspect]
     Indication: MYELODYSPLASTIC SYNDROME
     Dosage: DECITABINE20MG/M2 DAY 1-5 IV Q 4 WEEKS
     Route: 042
     Dates: start: 20100222, end: 20100226
  2. CYTARABINE [Suspect]
     Indication: MYELODYSPLASTIC SYNDROME
     Dosage: CYTARABINE20MG/M2 DAY 1-5 IV Q 4 WEEKS
     Route: 042
     Dates: start: 20100222, end: 20100226
  3. NEUPOGEN [Suspect]
     Indication: MYELODYSPLASTIC SYNDROME
     Dosage: G-CSF 5MCG/KG DAY 1-5 SC Q 4 WEEKS
     Route: 058
     Dates: start: 20100222, end: 20100226

REACTIONS (6)
  - DEHYDRATION [None]
  - DYSPHAGIA [None]
  - HAEMOGLOBIN DECREASED [None]
  - MUCOSAL INFLAMMATION [None]
  - PLATELET COUNT DECREASED [None]
  - PRESYNCOPE [None]
